FAERS Safety Report 9225630 (Version 1)
Quarter: 2013Q1

REPORT INFORMATION
  Report Type: Spontaneous
  Country: US (occurrence: None)
  Receive Date: 20120914
  Receipt Date: 20120914
  Transmission Date: 20140127
  Serious: Yes (Other)
  Sender: FDA-Public Use
  Company Number: JPI-P-018049

PATIENT
  Age: 48 Year
  Sex: Female
  Weight: 104.33 kg

DRUGS (5)
  1. XYREM [Suspect]
     Indication: NARCOLEPSY
     Route: 048
     Dates: start: 2008
  2. SYNTHROID (LEVOTHYROXINE) [Concomitant]
  3. SPIRONOLACTONE [Concomitant]
  4. EFFEXOR (VENLAFAXINE) [Concomitant]
  5. LIOTHYRONINE [Concomitant]

REACTIONS (1)
  - Ankle fracture [None]
